FAERS Safety Report 25870029 (Version 1)
Quarter: 2025Q4

REPORT INFORMATION
  Report Type: Spontaneous
  Country: US (occurrence: US)
  Receive Date: 20251001
  Receipt Date: 20251001
  Transmission Date: 20260118
  Serious: Yes (Other)
  Sender: ALEXION PHARMACEUTICALS
  Company Number: US-ASTRAZENECA-202509USA026414US

PATIENT
  Age: 76 Year
  Sex: Female

DRUGS (2)
  1. FARXIGA [Suspect]
     Active Substance: DAPAGLIFLOZIN PROPANEDIOL
     Indication: Diabetes mellitus
     Route: 065
  2. XERMELO [Suspect]
     Active Substance: TELOTRISTAT ETHYL
     Indication: Carcinoid syndrome
     Dosage: 250 MILLIGRAM

REACTIONS (5)
  - Diabetes mellitus [Unknown]
  - Urinary tract infection [Unknown]
  - Fungal infection [Unknown]
  - Constipation [Unknown]
  - Therapy cessation [Unknown]
